FAERS Safety Report 18942671 (Version 1)
Quarter: 2021Q1

REPORT INFORMATION
  Report Type: Spontaneous
  Country: FR (occurrence: FR)
  Receive Date: 20210225
  Receipt Date: 20210225
  Transmission Date: 20210420
  Serious: Yes (Other)
  Sender: FDA-Public Use
  Company Number: FR-PURDUE-USA-2021-0217068

PATIENT
  Age: 87 Year
  Sex: Female
  Weight: 42 kg

DRUGS (4)
  1. OXYNORMORO [Suspect]
     Active Substance: OXYCODONE HYDROCHLORIDE
     Indication: PAIN
     Dosage: 5 MG, UNK (STRENGTH 5MG)
     Route: 048
     Dates: start: 20210113, end: 20210119
  2. DOLIPRANE [Suspect]
     Active Substance: ACETAMINOPHEN
     Dosage: 2000 MG, UNK (STRENGTH 500 MG)
     Route: 048
     Dates: start: 20210116, end: 20210119
  3. OXYCODONE MYLAN [Suspect]
     Active Substance: OXYCODONE
     Indication: PAIN
     Dosage: 20 MG, UNK (STRENGTH 10 MG)
     Route: 048
     Dates: start: 20210117, end: 20210119
  4. DOLIPRANE [Suspect]
     Active Substance: ACETAMINOPHEN
     Indication: PAIN
     Dosage: 4 G, UNK (STRENGTH 1000 MG)
     Route: 048
     Dates: start: 20210111, end: 20210116

REACTIONS (2)
  - Cholestasis [Recovering/Resolving]
  - Hepatocellular injury [Recovering/Resolving]

NARRATIVE: CASE EVENT DATE: 20210119
